FAERS Safety Report 18571956 (Version 1)
Quarter: 2020Q4

REPORT INFORMATION
  Report Type: Spontaneous
  Country: US (occurrence: US)
  Receive Date: 20201202
  Receipt Date: 20201202
  Transmission Date: 20210114
  Serious: No
  Sender: FDA-Public Use
  Company Number: NVSC2020US321434

PATIENT
  Sex: Female

DRUGS (1)
  1. COSENTYX [Suspect]
     Active Substance: SECUKINUMAB
     Indication: PSORIATIC ARTHROPATHY
     Dosage: 150 MG, OTHER (WEEKLY FOR 5 WEEKS THEN EVERY 4 WEEKS)
     Route: 058

REACTIONS (3)
  - Mouth ulceration [Recovered/Resolved]
  - Nasal ulcer [Recovered/Resolved]
  - Therapeutic product effect incomplete [Unknown]
